FAERS Safety Report 21363646 (Version 5)
Quarter: 2023Q1

REPORT INFORMATION
  Report Type: Spontaneous
  Country: AR (occurrence: AR)
  Receive Date: 20220922
  Receipt Date: 20230110
  Transmission Date: 20230417
  Serious: Yes (Hospitalization, Other)
  Sender: FDA-Public Use
  Company Number: AR-PFIZER INC-PV202200062693

PATIENT
  Age: 46 Year
  Sex: Female

DRUGS (2)
  1. GENOTROPIN [Suspect]
     Active Substance: SOMATROPIN
     Indication: Growth hormone deficiency
     Dosage: 1.5 TO 2 MG, 7 TIMES PER WEEK
     Dates: start: 20090831
  2. GENOTROPIN [Suspect]
     Active Substance: SOMATROPIN
     Dosage: 2 MG, DAILY

REACTIONS (17)
  - Blood magnesium decreased [Unknown]
  - Blood potassium decreased [Unknown]
  - Blood phosphorus decreased [Unknown]
  - Blood sodium decreased [Unknown]
  - Syncope [Unknown]
  - Feeling abnormal [Unknown]
  - Illness [Unknown]
  - Malabsorption [Unknown]
  - Oral disorder [Unknown]
  - Hypersomnia [Unknown]
  - Device breakage [Unknown]
  - Poor quality device used [Unknown]
  - Myalgia [Unknown]
  - Pain [Unknown]
  - Headache [Unknown]
  - Confusional state [Unknown]
  - Anaemia [Unknown]

NARRATIVE: CASE EVENT DATE: 20220903
